FAERS Safety Report 21611197 (Version 4)
Quarter: 2025Q2

REPORT INFORMATION
  Report Type: Spontaneous
  Country: US (occurrence: US)
  Receive Date: 20221117
  Receipt Date: 20250519
  Transmission Date: 20250716
  Serious: No
  Sender: SANOFI AVENTIS
  Company Number: US-SA-SAC20221114001514

PATIENT
  Sex: Female
  Weight: 106.14 kg

DRUGS (20)
  1. DUPIXENT [Suspect]
     Active Substance: DUPILUMAB
     Indication: Neurodermatitis
     Dosage: 300 MG, QW
     Route: 058
  2. DUPIXENT [Suspect]
     Active Substance: DUPILUMAB
     Indication: Dermatitis allergic
     Dosage: 300 MG, QOW
     Route: 058
  3. DUPIXENT [Suspect]
     Active Substance: DUPILUMAB
     Indication: Dermatitis atopic
  4. MIRALAX [Concomitant]
     Active Substance: POLYETHYLENE GLYCOL 3350
  5. DULCOLAX (BISACODYL) [Concomitant]
     Active Substance: BISACODYL
  6. MINERALS\VITAMINS [Concomitant]
     Active Substance: MINERALS\VITAMINS
  7. GABAPENTIN [Concomitant]
     Active Substance: GABAPENTIN
  8. OXCARBAZEPINE [Concomitant]
     Active Substance: OXCARBAZEPINE
  9. MOUNJARO [Concomitant]
     Active Substance: TIRZEPATIDE
  10. NALTREXONE [Concomitant]
     Active Substance: NALTREXONE
  11. ALPRAZOLAM [Concomitant]
     Active Substance: ALPRAZOLAM
  12. LISINOPRIL [Concomitant]
     Active Substance: LISINOPRIL
  13. DONEPEZIL [Concomitant]
     Active Substance: DONEPEZIL
  14. OMEPRAZOLE [Concomitant]
     Active Substance: OMEPRAZOLE
  15. HYDROXYZINE [Concomitant]
     Active Substance: HYDROXYZINE HYDROCHLORIDE
  16. ATORVASTATIN [Concomitant]
     Active Substance: ATORVASTATIN
  17. METOPROLOL [Concomitant]
     Active Substance: METOPROLOL
  18. MONTELUKAST [Concomitant]
     Active Substance: MONTELUKAST
  19. ELIQUIS [Concomitant]
     Active Substance: APIXABAN
  20. MECLIZINE [Concomitant]
     Active Substance: MECLIZINE HYDROCHLORIDE

REACTIONS (7)
  - Pruritus [Unknown]
  - Eczema [Unknown]
  - Pain of skin [Unknown]
  - Therapeutic response shortened [Unknown]
  - Inappropriate schedule of product administration [Unknown]
  - Product dose omission issue [Unknown]
  - Skin weeping [Not Recovered/Not Resolved]
